FAERS Safety Report 5844409-8 (Version None)
Quarter: 2008Q3

REPORT INFORMATION
  Report Type: 
  Country: None (occurrence: None)
  Receive Date: 20080808
  Receipt Date: 20080729
  Transmission Date: 20090109
  Serious: Yes (Other)
  Sender: FDA-Public Use
  Company Number: 2008JP003527

PATIENT
  Age: 2 Year
  Sex: Female
  Weight: 8.6 kg

DRUGS (1)
  1. PROGRAF [Suspect]
     Indication: LIVER TRANSPLANT
     Dosage: ORAL
     Route: 048

REACTIONS (12)
  - CATHETER SITE RELATED REACTION [None]
  - DEHYDRATION [None]
  - DRUG LEVEL BELOW THERAPEUTIC [None]
  - EPSTEIN-BARR VIRUS INFECTION [None]
  - IMPLANT SITE THROMBOSIS [None]
  - LYMPHOPROLIFERATIVE DISORDER [None]
  - MALNUTRITION [None]
  - PLEURAL EFFUSION [None]
  - PULMONARY EMBOLISM [None]
  - PYLORIC STENOSIS [None]
  - STAPHYLOCOCCAL SEPSIS [None]
  - WEIGHT DECREASED [None]
